FAERS Safety Report 5130469-9 (Version None)
Quarter: 2006Q4

REPORT INFORMATION
  Report Type: 
  Country: None (occurrence: None)
  Receive Date: 20061018
  Receipt Date: 20061018
  Transmission Date: 20070319
  Serious: Yes (Life-Threatening, Hospitalization)
  Sender: FDA-Public Use
  Company Number: None

PATIENT
  Age: 30 Year
  Sex: Female
  Weight: 58.0604 kg

DRUGS (3)
  1. LEXAPRO [Suspect]
     Indication: ANXIETY
     Dosage: 10 MG DAILY PO
     Route: 048
     Dates: start: 20060825, end: 20060928
  2. MAXALT [Suspect]
     Indication: MIGRAINE
     Dosage: 10 MG 1 TAB ONSET + 1 PRN2 PO
     Route: 048
     Dates: start: 20050101, end: 20060901
  3. SYNTHROID [Concomitant]

REACTIONS (10)
  - AGITATION [None]
  - ANXIETY [None]
  - CONTRAINDICATION TO MEDICAL TREATMENT [None]
  - DEPRESSION [None]
  - DIARRHOEA [None]
  - HEADACHE [None]
  - MENTAL DISORDER [None]
  - NAUSEA [None]
  - PALPITATIONS [None]
  - SUICIDAL IDEATION [None]
